FAERS Safety Report 23805379 (Version 2)
Quarter: 2024Q2

REPORT INFORMATION
  Report Type: Spontaneous
  Country: US (occurrence: US)
  Receive Date: 20240502
  Receipt Date: 20240605
  Transmission Date: 20240715
  Serious: Yes (Hospitalization, Other)
  Sender: FDA-Public Use
  Company Number: None

PATIENT
  Age: 25 Year
  Sex: Male

DRUGS (6)
  1. RISPERIDONE [Interacting]
     Active Substance: RISPERIDONE
     Indication: Psychotic disorder
     Dosage: 4 MG DAILY
     Route: 065
  2. RISPERIDONE [Interacting]
     Active Substance: RISPERIDONE
     Indication: Substance-induced psychotic disorder
     Dosage: 4 MG DAILY (RE-START)
     Route: 065
  3. SERTRALINE [Interacting]
     Active Substance: SERTRALINE HYDROCHLORIDE
     Indication: Depression
     Dosage: 50 MG DAILY
     Route: 065
  4. SERTRALINE [Interacting]
     Active Substance: SERTRALINE HYDROCHLORIDE
     Dosage: 100 MG DAILY
     Route: 065
  5. SERTRALINE [Interacting]
     Active Substance: SERTRALINE HYDROCHLORIDE
     Dosage: TITRATED
  6. TRAZODONE [Suspect]
     Active Substance: TRAZODONE HYDROCHLORIDE
     Indication: Insomnia
     Dosage: 50 MG, NIGHTLY
     Route: 065

REACTIONS (5)
  - Serotonin syndrome [Recovered/Resolved]
  - Agitation [Recovered/Resolved]
  - Drug interaction [Recovered/Resolved]
  - Mental status changes [Recovered/Resolved]
  - Hyperhidrosis [Recovered/Resolved]
